FAERS Safety Report 15101659 (Version 2)
Quarter: 2018Q3

REPORT INFORMATION
  Report Type: Report from Study
  Country: JP (occurrence: JP)
  Receive Date: 20180703
  Receipt Date: 20180730
  Transmission Date: 20181010
  Serious: No
  Sender: FDA-Public Use
  Company Number: JP-GLAXOSMITHKLINE-JP2018JPN115153

PATIENT
  Age: 74 Year

DRUGS (8)
  1. MEPOLIZUMAB [Suspect]
     Active Substance: MEPOLIZUMAB
     Dosage: 100 MG, EVERY FOUR WEEKS
     Route: 058
     Dates: start: 20171107
  2. NASONEX NASAL SOLUTIONS [Concomitant]
     Indication: RHINITIS ALLERGIC
     Dosage: 200 ?G, QD
     Dates: start: 201802
  3. MEPOLIZUMAB [Suspect]
     Active Substance: MEPOLIZUMAB
     Indication: ASTHMA
     Dosage: 100 MG, EVERY FOUR WEEKS
     Route: 058
     Dates: start: 20160913
  4. MEPOLIZUMAB [Suspect]
     Active Substance: MEPOLIZUMAB
     Dosage: 100 MG, EVERY FOUR WEEKS
     Route: 058
     Dates: start: 20161213
  5. FOSAMAC [Concomitant]
     Active Substance: ALENDRONATE SODIUM
     Dosage: 35 MG, WE
  6. ADOAIR AEROSOL [Concomitant]
     Indication: ASTHMA
     Dosage: 250 ?G, BID
     Dates: start: 201612
  7. NEXIUM CAPSULE [Concomitant]
     Dosage: 20 MG, QD
  8. BROTIZOLAM TABLETS [Concomitant]
     Dosage: 0.5 MG, QD

REACTIONS (2)
  - Visual acuity reduced [Unknown]
  - Retinal drusen [Unknown]

NARRATIVE: CASE EVENT DATE: 20161115
